FAERS Safety Report 6109422-4 (Version None)
Quarter: 2009Q1

REPORT INFORMATION
  Report Type: 
  Country: None (occurrence: None)
  Receive Date: 20090310
  Receipt Date: 20090303
  Transmission Date: 20090719
  Serious: Yes (Other)
  Sender: FDA-Public Use
  Company Number: B0562772A

PATIENT
  Age: 34 Year
  Sex: Male
  Weight: 61 kg

DRUGS (5)
  1. BECOTIDE [Suspect]
     Indication: ASTHMA
     Route: 055
     Dates: start: 20061001, end: 20061114
  2. BECOTIDE [Concomitant]
     Dosage: 400MG PER DAY
     Route: 055
     Dates: start: 19860101
  3. VENTOLIN [Concomitant]
     Indication: ASTHMA
     Route: 055
     Dates: start: 19860101
  4. PROPECIA [Concomitant]
     Route: 048
     Dates: start: 20050703
  5. CITALOPRAM HYDROBROMIDE [Concomitant]
     Indication: ANXIETY
     Route: 048
     Dates: start: 20060608

REACTIONS (4)
  - BRONCHOSPASM [None]
  - COUGH [None]
  - DYSPNOEA [None]
  - PEAK EXPIRATORY FLOW RATE DECREASED [None]
